FAERS Safety Report 15435824 (Version 1)
Quarter: 2018Q3

REPORT INFORMATION
  Report Type: Other
  Country: None (occurrence: KR)
  Receive Date: 20180927
  Receipt Date: 20180927
  Transmission Date: 20181010
  Serious: Yes (Death, Life-Threatening, Hospitalization)
  Sender: FDA-Public Use
  Company Number: KR-NOSTRUM LABORATORIES, INC.-2055428

PATIENT
  Age: 11 Year
  Sex: Female

DRUGS (1)
  1. ACETAZOLAMIDE EXTENDED?RELEASE [Suspect]
     Active Substance: ACETAZOLAMIDE
     Indication: MOYAMOYA DISEASE
     Route: 042

REACTIONS (2)
  - Seizure [Fatal]
  - Cerebral infarction [Fatal]
